FAERS Safety Report 5316495-5 (Version None)
Quarter: 2007Q2

REPORT INFORMATION
  Report Type: 
  Country: None (occurrence: None)
  Receive Date: 20070504
  Receipt Date: 20070423
  Transmission Date: 20071010
  Serious: Yes (Death, Life-Threatening, Hospitalization)
  Sender: FDA-Public Use
  Company Number: NO-PFIZER INC-2007031884

PATIENT
  Sex: Male

DRUGS (42)
  1. ZYVOX [Suspect]
     Indication: SEPSIS
     Route: 042
     Dates: start: 20041105, end: 20041117
  2. DIPEPTIVEN [Concomitant]
  3. VANCOMYCIN [Concomitant]
  4. HALDOL [Concomitant]
  5. ACTRAPID [Concomitant]
  6. ATNATIV [Concomitant]
  7. CLONIDINE HCL [Concomitant]
  8. SENDOXAN [Concomitant]
  9. VFEND [Concomitant]
  10. ZANTAC [Concomitant]
  11. PANTOPRAZOLE SODIUM [Concomitant]
  12. LOPERAMIDE HYDROCHLORIDE [Concomitant]
  13. SODIUM CHLORIDE [Concomitant]
  14. ZOFRAN [Concomitant]
  15. METOPROLOL TARTRATE [Concomitant]
  16. TAZOCIN [Concomitant]
  17. MERONEM [Concomitant]
  18. FURIX [Concomitant]
  19. AFIPRAN [Concomitant]
  20. BACTRIM [Concomitant]
  21. KETOBEMIDONE [Concomitant]
  22. NIMBEX [Concomitant]
     Dates: start: 20041021, end: 20041029
  23. FRAGMIN [Concomitant]
  24. POTASSIUM CHLORIDE [Concomitant]
  25. CYMEVENE [Concomitant]
  26. POTASSIUM PHOSPHATES [Concomitant]
  27. FENTANYL [Concomitant]
  28. MIDAZOLAM HCL [Concomitant]
  29. DIFLUCAN [Concomitant]
  30. HEPARIN ^LEO^ [Concomitant]
  31. ACYCLOVIR [Concomitant]
  32. CYKLOKAPRON [Concomitant]
  33. PROPOFOL [Concomitant]
  34. METRONIDAZOLE [Concomitant]
  35. CIPROFLOXACIN HYDROCHLORIDE [Concomitant]
  36. ZOVIRAX [Concomitant]
  37. SOLU-MEDROL [Concomitant]
     Dosage: DAILY DOSE:1GRAM
  38. SOLU-MEDROL [Concomitant]
     Dosage: TEXT:80-40 MG
  39. PARACETAMOL [Concomitant]
  40. TRANDATE [Concomitant]
  41. IMMUNE GLOBULIN INTRAVENOUS (HUMAN) [Concomitant]
  42. NIMOTOP [Concomitant]

REACTIONS (2)
  - MYOPATHY [None]
  - NEUROPATHY PERIPHERAL [None]
